FAERS Safety Report 4514370-7 (Version None)
Quarter: 2004Q4

REPORT INFORMATION
  Report Type: 
  Country: None (occurrence: None)
  Receive Date: 20041124
  Receipt Date: 20040713
  Transmission Date: 20050328
  Serious: Yes (Other)
  Sender: FDA-Public Use
  Company Number: DE-2004-029100

PATIENT
  Sex: Male

DRUGS (2)
  1. QUADRAMET [Suspect]
     Indication: MULTIPLE MYELOMA
  2. MELPHALAN (MELPHALAN) [Concomitant]

REACTIONS (3)
  - HEPATOTOXICITY [None]
  - RENAL FAILURE [None]
  - STEM CELL TRANSPLANT [None]
